FAERS Safety Report 10408697 (Version 1)
Quarter: 2014Q1

REPORT INFORMATION
  Report Type: Spontaneous
  Country: US (occurrence: None)
  Receive Date: 20130305
  Receipt Date: 20130305
  Transmission Date: 20141002
  Serious: Yes (Other)
  Sender: FDA-Public Use
  Company Number: 2012000234S

PATIENT
  Sex: Female

DRUGS (1)
  1. NAPRELAN [Suspect]

REACTIONS (1)
  - Chest discomfort [None]
